FAERS Safety Report 6024107-0 (Version None)
Quarter: 2008Q4

REPORT INFORMATION
  Report Type: 
  Country: None (occurrence: None)
  Receive Date: 20081224
  Receipt Date: 20081212
  Transmission Date: 20090506
  Serious: Yes (Hospitalization, Other)
  Sender: FDA-Public Use
  Company Number: 2008-03086

PATIENT
  Age: 67 Year
  Sex: Male
  Weight: 97.5 kg

DRUGS (21)
  1. VELCADE [Suspect]
     Indication: MULTIPLE MYELOMA
     Dosage: 1.3 MG/M2
     Dates: start: 20080721
  2. DOXIL [Suspect]
     Indication: MULTIPLE MYELOMA
     Dosage: 45 MG
     Dates: start: 20080724, end: 20080825
  3. ASPIRIN [Concomitant]
  4. GLIPIZIDE [Concomitant]
  5. TRIAMTERENE (TRIAMTERENE) [Concomitant]
  6. CITALOPRAM HYDROBROMIDE [Concomitant]
  7. XANAX [Concomitant]
  8. DIGOXIN [Concomitant]
  9. AMLODIPINE BESYLATE [Concomitant]
  10. SIMVASTATIN [Concomitant]
  11. ASCORBIC ACID [Concomitant]
  12. VITAMIN D [Concomitant]
  13. FISH OIL (FISH OIL) [Concomitant]
  14. PROTONIX [Concomitant]
  15. LANTUS [Concomitant]
  16. HUMULIN R [Concomitant]
  17. TYLOX [Concomitant]
  18. MINOXIDIL [Concomitant]
  19. DYAZIDE [Concomitant]
  20. DURAGESIC-100 [Concomitant]
  21. METOPROLOL TARTRATE [Concomitant]

REACTIONS (16)
  - ASPIRATION [None]
  - ATRIAL FIBRILLATION [None]
  - BLOOD CHLORIDE DECREASED [None]
  - BLOOD SODIUM DECREASED [None]
  - BLOOD UREA INCREASED [None]
  - CARDIAC FAILURE [None]
  - CHRONIC OBSTRUCTIVE PULMONARY DISEASE [None]
  - DYSPNOEA EXERTIONAL [None]
  - FATIGUE [None]
  - HEART RATE IRREGULAR [None]
  - OEDEMA PERIPHERAL [None]
  - PANCYTOPENIA [None]
  - PANIC ATTACK [None]
  - PLEURAL EFFUSION [None]
  - PNEUMONIA [None]
  - RADIATION PNEUMONITIS [None]
